FAERS Safety Report 20041076 (Version 1)
Quarter: 2021Q4

REPORT INFORMATION
  Report Type: Report from Study
  Country: US (occurrence: US)
  Receive Date: 20211107
  Receipt Date: 20211107
  Transmission Date: 20220304
  Serious: Yes (Hospitalization)
  Sender: FDA-Public Use
  Company Number: US-TEVA-2021-US-1975608

PATIENT
  Age: 55 Year
  Sex: Female
  Weight: 72.3 kg

DRUGS (26)
  1. DOXORUBICIN [Suspect]
     Active Substance: DOXORUBICIN
     Indication: Acute lymphocytic leukaemia recurrent
     Dosage: 10 MG/M2/DAY, CYCLIC (DAYS 1-4 028 DAYS),
     Route: 042
     Dates: start: 20210703, end: 20210706
  2. VINCRISTINE [Suspect]
     Active Substance: VINCRISTINE
     Indication: Acute lymphocytic leukaemia recurrent
     Dosage: 0.4 MG/M2/DAY, CYCLIC (DAYS 1-4 028 DAYS),
     Route: 042
     Dates: start: 20210703, end: 20210706
  3. ETOPOSIDE [Suspect]
     Active Substance: ETOPOSIDE
     Indication: Acute lymphocytic leukaemia recurrent
     Dosage: 50 MG/M2/DAY, CYCLIC (DAYS 1-4 028 DAYS),
     Route: 042
     Dates: start: 20210703, end: 20210706
  4. PREDNISONE [Suspect]
     Active Substance: PREDNISONE
     Indication: Acute lymphocytic leukaemia recurrent
     Dosage: 60 MG/M2, 2X/DAY (DAYS 1-5 028 DAYS),
     Route: 048
     Dates: start: 20210703, end: 20210707
  5. INOTUZUMAB OZOGAMICIN [Suspect]
     Active Substance: INOTUZUMAB OZOGAMICIN
     Indication: Acute lymphocytic leukaemia recurrent
     Dosage: 0.6 RNG/M2 CYCLIC (DAYS 8 AND 15).
     Route: 042
     Dates: start: 20210609, end: 20210609
  6. INOTUZUMAB OZOGAMICIN [Suspect]
     Active Substance: INOTUZUMAB OZOGAMICIN
     Dosage: 0.6 MG/M2, CYDIC (DAYS 8 AND 15)
     Route: 042
     Dates: start: 20210616, end: 20210616
  7. CYCLOPHOSPHAMIDE [Suspect]
     Active Substance: CYCLOPHOSPHAMIDE
     Indication: Acute lymphocytic leukaemia recurrent
     Dosage: 750 MG/M2, CYCLIC (DAY 5 028 DAYS},
     Route: 042
     Dates: start: 20210627, end: 20210627
  8. TYLENOL [Concomitant]
     Active Substance: ACETAMINOPHEN
     Dosage: 3TIMES DAILY PRN
     Route: 048
  9. ZOVIRAX [Concomitant]
     Active Substance: ACYCLOVIR
     Route: 048
  10. CAFFEINE [Concomitant]
     Active Substance: CAFFEINE
     Indication: Headache
     Dosage: 200 MG TABLET AT 0.5 TABLET BY MOUTH EVERY 4 HOURS AS NEEDED FOR HEADACHES FOR UP TO 2 DAYS
     Route: 048
  11. CALCIUM CARBONATE:VITAMIN D NOS [Concomitant]
     Dosage: 600-400 MG-UNIT TABLET 1 TABLET, DAILY
     Route: 048
  12. CHLORHEXIDINE GLUCONATE [Concomitant]
     Active Substance: CHLORHEXIDINE GLUCONATE
     Dosage: 0.12 %; SOLUTION SWISH AND SPIT 15 ML 2 TIMES A DAY.
  13. CHOLECALCIFEROL [Concomitant]
     Active Substance: CHOLECALCIFEROL
     Dosage: DAILY
     Route: 048
  14. DILAUDID [Concomitant]
     Active Substance: HYDROMORPHONE HYDROCHLORIDE
     Dosage: 2- 4 MG/EVERY 4 HOURS PRN MAX 6 TABLETS PER DAY
     Route: 048
  15. LEVAOUIN [Concomitant]
     Dosage: VERY 24 HOURS
     Route: 048
  16. LOPERAMIDE [Concomitant]
     Active Substance: LOPERAMIDE
     Indication: Diarrhoea
     Dosage: MAX BCAPS/DAY
     Route: 048
  17. LORATADINE [Concomitant]
     Active Substance: LORATADINE
     Dosage: 1 TIME A DAY
     Route: 048
  18. MAGNESIUM OXIDE [Concomitant]
     Active Substance: MAGNESIUM OXIDE
     Dosage: 800 MG, ORAL, 2 TIMES DAILY
     Route: 048
  19. LOVAZA [Concomitant]
     Active Substance: OMEGA-3-ACID ETHYL ESTERS
     Route: 048
  20. ZOFRAN [Concomitant]
     Active Substance: ONDANSETRON HYDROCHLORIDE
     Dosage: EVERY 8 HOURS AS NEEDED
     Route: 048
  21. PANTOPRAZOLE [Concomitant]
     Active Substance: PANTOPRAZOLE
     Dosage: 1 TIME A DAY ON AN EMPTY STOMACH
     Route: 048
  22. POTASSIUM CHLORIDE [Concomitant]
     Active Substance: POTASSIUM CHLORIDE
     Dosage: 10 MEQ. ORAL. 2 TIMES DAILY
     Route: 048
  23. COMPAZINE [Concomitant]
     Active Substance: PROCHLORPERAZINE MALEATE
     Dosage: EVERY 6 HOURS AS NEEDED
     Route: 048
  24. SODIUM FLUORIDE [Concomitant]
     Active Substance: SODIUM FLUORIDE
  25. SULFAMETHOXAZOLE\TRIMETHOPRIM [Concomitant]
     Active Substance: SULFAMETHOXAZOLE\TRIMETHOPRIM
     Dosage: 800-160 MG
     Route: 048
  26. URSODIOL [Concomitant]
     Active Substance: URSODIOL

REACTIONS (2)
  - Pneumonia [Recovered/Resolved]
  - Hyponatraemia [Recovering/Resolving]

NARRATIVE: CASE EVENT DATE: 20210728
